FAERS Safety Report 10251097 (Version 1)
Quarter: 2014Q2

REPORT INFORMATION
  Report Type: Spontaneous
  Country: JP (occurrence: JP)
  Receive Date: 20140620
  Receipt Date: 20140620
  Transmission Date: 20141212
  Serious: Yes (Other)
  Sender: FDA-Public Use
  Company Number: JP-BRISTOL-MYERS SQUIBB COMPANY-21066717

PATIENT
  Sex: Female

DRUGS (2)
  1. METGLUCO [Suspect]
     Dosage: DOSE INCREASED: 500MG/D
     Route: 048
  2. VILDAGLIPTIN [Suspect]
     Route: 048

REACTIONS (1)
  - Hepatitis acute [Recovered/Resolved]
